FAERS Safety Report 12505108 (Version 2)
Quarter: 2016Q4

REPORT INFORMATION
  Report Type: Spontaneous
  Country: US (occurrence: US)
  Receive Date: 20160628
  Receipt Date: 20161110
  Transmission Date: 20170207
  Serious: No
  Sender: FDA-Public Use
  Company Number: US-GLAXOSMITHKLINE-US2016091002

PATIENT
  Sex: Male

DRUGS (2)
  1. EXCEDRIN MIGRAINE [Suspect]
     Active Substance: ACETAMINOPHEN\ASPIRIN\CAFFEINE
     Indication: OSTEOARTHRITIS
     Dosage: 2 DF, IN MORNING
     Route: 048
  2. SULINDAC. [Suspect]
     Active Substance: SULINDAC
     Indication: OSTEOARTHRITIS
     Dosage: UNK, IN EVENING

REACTIONS (3)
  - Off label use [Unknown]
  - Therapeutic response unexpected [Unknown]
  - Drug ineffective [Unknown]
